FAERS Safety Report 16133069 (Version 1)
Quarter: 2019Q1

REPORT INFORMATION
  Report Type: Spontaneous
  Country: US (occurrence: US)
  Receive Date: 20190329
  Receipt Date: 20190329
  Transmission Date: 20190418
  Serious: No
  Sender: FDA-Public Use
  Company Number: US-PFIZER INC-2018495551

PATIENT
  Age: 38 Year
  Sex: Female
  Weight: 114.29 kg

DRUGS (2)
  1. TAXOTERE [Suspect]
     Active Substance: DOCETAXEL
     Indication: BREAST CANCER
     Dosage: 170 MG, CYCLIC
     Dates: start: 20110616, end: 20111117
  2. DOCETAXEL. [Suspect]
     Active Substance: DOCETAXEL
     Indication: BREAST CANCER
     Dosage: 170 MG, CYCLIC
     Dates: start: 20110616, end: 20171117

REACTIONS (1)
  - Alopecia [Not Recovered/Not Resolved]
